FAERS Safety Report 12505915 (Version 2)
Quarter: 2016Q3

REPORT INFORMATION
  Report Type: Spontaneous
  Country: TW (occurrence: TW)
  Receive Date: 20160628
  Receipt Date: 20160704
  Transmission Date: 20161109
  Serious: Yes (Death, Hospitalization, Other)
  Sender: FDA-Public Use
  Company Number: TW-CONCORDIA PHARMACEUTICALS INC.-E2B_00007780

PATIENT
  Age: 50 Year
  Sex: Male

DRUGS (5)
  1. PREDNISOLONE. [Suspect]
     Active Substance: PREDNISOLONE
     Indication: NEPHROTIC SYNDROME
     Dates: start: 201303
  2. CEPHALOSPORIN [Concomitant]
     Active Substance: UNSPECIFIED INGREDIENT
  3. METHYLPREDNISOLONE. [Concomitant]
     Active Substance: METHYLPREDNISOLONE
     Route: 042
  4. MESALAMINE. [Concomitant]
     Active Substance: MESALAMINE
     Route: 054
  5. MESALAMINE. [Concomitant]
     Active Substance: MESALAMINE
     Indication: COLITIS ULCERATIVE
     Route: 048

REACTIONS (5)
  - Colitis [Unknown]
  - Renal impairment [Unknown]
  - Sepsis [Fatal]
  - Infectious colitis [Unknown]
  - Large intestine perforation [Unknown]
